FAERS Safety Report 7271825-2 (Version None)
Quarter: 2011Q1

REPORT INFORMATION
  Report Type: 
  Country: None (occurrence: None)
  Receive Date: 20110127
  Receipt Date: 20110117
  Transmission Date: 20110831
  Serious: Yes (Other)
  Sender: FDA-Public Use
  Company Number: DSA_44819_2011

PATIENT
  Age: 28 Year
  Sex: Female

DRUGS (2)
  1. ALPRAZOLAM [Concomitant]
  2. WELLBUTRIN [Suspect]
     Indication: MAJOR DEPRESSION
     Dosage: (300 MG QD ORAL)
     Route: 048
     Dates: start: 20101204, end: 20101224

REACTIONS (3)
  - GRAND MAL CONVULSION [None]
  - HEAD INJURY [None]
  - LACERATION [None]
